FAERS Safety Report 8770087 (Version 1)
Quarter: 2012Q4

REPORT INFORMATION
  Report Type: 
  Country: IT (occurrence: IT)
  Receive Date: 20120905
  Receipt Date: 20120905
  Transmission Date: 20130627
  Serious: Yes (Other)
  Sender: FDA-Public Use
  Company Number: IT-PFIZER INC-2012206747

PATIENT
  Age: 62 Year
  Sex: Male
  Weight: 68 kg

DRUGS (1)
  1. BENEFIX [Suspect]
     Indication: FACTOR IX DEFICIENCY
     Dosage: 40 IU/kg daily, on demand, total cumulative dose 28,000 IU
     Dates: start: 200006, end: 200009

REACTIONS (1)
  - Drug ineffective [Recovered/Resolved]
